FAERS Safety Report 8273325-X (Version None)
Quarter: 2012Q2

REPORT INFORMATION
  Report Type: 
  Country: None (occurrence: None)
  Receive Date: 20120411
  Receipt Date: 20120404
  Transmission Date: 20120825
  Serious: Yes (Hospitalization)
  Sender: FDA-Public Use
  Company Number: PHHY2012DE023406

PATIENT
  Sex: Male
  Weight: 95 kg

DRUGS (16)
  1. EXFORGE [Suspect]
     Indication: HYPERTENSION
     Dosage: 1 DF, PER DAY
     Route: 048
     Dates: start: 20090319, end: 20111221
  2. SIMVASTATIN [Suspect]
     Dosage: 1 DF, QD
     Route: 048
     Dates: start: 20080401
  3. ARAVA [Suspect]
     Dosage: 1 DF, QD
     Route: 048
     Dates: start: 20090201, end: 20111221
  4. METFORMIN HCL [Suspect]
     Indication: DIABETES MELLITUS
     Dosage: 2 DF, DAILY
     Dates: start: 20080401
  5. AMLODIPINE [Suspect]
     Dosage: 5 MG/DAY
     Route: 048
     Dates: start: 20080220, end: 20090319
  6. ALDACTONE [Suspect]
     Indication: HYPERTENSION
     Dosage: 1 DF, QD
     Route: 048
     Dates: start: 20100315
  7. BISOPROLOL FUMARATE [Suspect]
     Dosage: 0.5 DF, QD
     Route: 048
     Dates: start: 20080401
  8. ACETYLSALICYLIC ACID SRT [Suspect]
     Dosage: 1 DF, QD
     Route: 048
     Dates: start: 20080401
  9. TORSEMIDE [Suspect]
     Dosage: 0.5 DF, QD
     Route: 048
     Dates: start: 20080201
  10. ATACAND [Suspect]
     Dosage: 16 MG/DAY
     Route: 048
     Dates: start: 20080220, end: 20090319
  11. RASILEZ [Suspect]
     Indication: HYPERTENSION
     Dosage: 150 MG, PER DAY
     Route: 048
     Dates: start: 20090224, end: 20111221
  12. ALLOPURINOL [Suspect]
     Dosage: 0.5 DF, QD
     Route: 048
     Dates: start: 20080701
  13. PREDNISOLONE [Suspect]
     Dosage: 1 DF, QD
     Route: 048
     Dates: start: 20090201
  14. OTHER ANTIHYPERTENSIVES [Concomitant]
  15. LYRIKA [Concomitant]
     Dosage: 2 DF/DAY
     Route: 048
     Dates: start: 20111201
  16. TAMSULOSIN HCL [Suspect]
     Dosage: 1 DF, QD
     Route: 048
     Dates: start: 20100301

REACTIONS (1)
  - HISTIOCYTOSIS [None]
